FAERS Safety Report 5072049-X (Version None)
Quarter: 2006Q3

REPORT INFORMATION
  Report Type: 
  Country: None (occurrence: None)
  Receive Date: 20060807
  Receipt Date: 20060801
  Transmission Date: 20061208
  Serious: Yes (Hospitalization)
  Sender: FDA-Public Use
  Company Number: BE-AVENTIS-200618082GDDC

PATIENT
  Age: 72 Year
  Sex: Male
  Weight: 62 kg

DRUGS (14)
  1. OTHER ANTINEOPLASTIC AGENTS [Suspect]
     Route: 042
     Dates: start: 20060710, end: 20060710
  2. IRINOTECAN HCL [Suspect]
     Route: 042
     Dates: start: 20060710, end: 20060710
  3. LEUCOVORIN CALCIUM [Suspect]
     Route: 042
     Dates: start: 20060710, end: 20060712
  4. FLUOROURACIL [Suspect]
     Route: 042
     Dates: start: 20060710, end: 20060712
  5. IMODIUM [Concomitant]
     Route: 048
  6. ZOFRAN [Concomitant]
     Indication: NAUSEA
     Route: 048
  7. NYSTATINE [Concomitant]
     Route: 048
  8. UNKNOWN DRUG [Concomitant]
     Route: 048
  9. BUSCOPAN [Concomitant]
     Route: 048
  10. MS DIRECT [Concomitant]
     Route: 048
  11. OTHER ANTIDIARRHOEALS [Concomitant]
     Route: 048
  12. TEMESTA [Concomitant]
     Route: 048
  13. COZAAR [Concomitant]
     Route: 048
  14. OMEPRAZOLE [Concomitant]
     Route: 048

REACTIONS (1)
  - FEBRILE NEUTROPENIA [None]
